FAERS Safety Report 23827455 (Version 1)
Quarter: 2024Q2

REPORT INFORMATION
  Report Type: Spontaneous
  Country: US (occurrence: None)
  Receive Date: 20240506
  Receipt Date: 20240506
  Transmission Date: 20240716
  Serious: Yes (Life-Threatening, Hospitalization)
  Sender: FDA-Public Use
  Company Number: None

PATIENT
  Age: 69 Year
  Sex: Male
  Weight: 82.8 kg

DRUGS (1)
  1. IRON [Suspect]
     Active Substance: IRON
     Indication: Eructation
     Dates: start: 20230929, end: 20240424

REACTIONS (5)
  - Fatigue [None]
  - Dyspnoea [None]
  - Myalgia [None]
  - Neuralgia [None]
  - Anaemia [None]

NARRATIVE: CASE EVENT DATE: 20240422
